FAERS Safety Report 9575491 (Version 1)
Quarter: 2013Q4

REPORT INFORMATION
  Report Type: Spontaneous
  Country: US (occurrence: US)
  Receive Date: 20131001
  Receipt Date: 20131001
  Transmission Date: 20140711
  Serious: No
  Sender: FDA-Public Use
  Company Number: US-AMGEN-USASP2012083487

PATIENT
  Sex: Male
  Weight: 99.77 kg

DRUGS (6)
  1. ENBREL [Suspect]
     Indication: PSORIATIC ARTHROPATHY
     Dosage: 50 MG, 2 TIMES/WK
     Route: 058
  2. AMLODIPINE [Concomitant]
     Dosage: 10 MG, UNK
  3. CARVEDILOL [Concomitant]
     Dosage: 25 MG, UNK
  4. POTASSIUM [Concomitant]
     Dosage: 75 MG, UNK
  5. LOSARTAN/HCT [Concomitant]
     Dosage: UNK,100-12.5
  6. NEXIUM                             /01479302/ [Concomitant]
     Dosage: 20 MG, UNK

REACTIONS (4)
  - Blood pressure increased [Unknown]
  - Heart rate increased [Unknown]
  - Nasopharyngitis [Unknown]
  - Sinusitis [Unknown]
